FAERS Safety Report 10403096 (Version 2)
Quarter: 2014Q3

REPORT INFORMATION
  Report Type: Spontaneous
  Country: US (occurrence: US)
  Receive Date: 20140822
  Receipt Date: 20140822
  Transmission Date: 20150326
  Serious: Yes (Hospitalization)
  Sender: FDA-Public Use
  Company Number: US-GLAXOSMITHKLINE-A0733238A

PATIENT
  Sex: Male
  Weight: 122.7 kg

DRUGS (10)
  1. GLUCOPHAGE [Concomitant]
     Active Substance: METFORMIN HYDROCHLORIDE
  2. IRON [Concomitant]
     Active Substance: IRON
  3. CRESTOR [Concomitant]
     Active Substance: ROSUVASTATIN CALCIUM
  4. AVANDIA [Suspect]
     Active Substance: ROSIGLITAZONE MALEATE
     Indication: TYPE 1 DIABETES MELLITUS
     Dosage: 8MG PER DAY
     Route: 048
     Dates: start: 200601, end: 2007
  5. INSULIN [Concomitant]
     Active Substance: INSULIN NOS
  6. ATENOLOL. [Concomitant]
     Active Substance: ATENOLOL
  7. DIOVAN [Concomitant]
     Active Substance: VALSARTAN
  8. ROSIGLITAZONE [Suspect]
     Active Substance: ROSIGLITAZONE
     Indication: DIABETES MELLITUS
     Dosage: 4MG PER DAY
     Route: 048
     Dates: start: 200605, end: 200609
  9. LEVOXYL [Concomitant]
     Active Substance: LEVOTHYROXINE SODIUM
  10. CLARITIN [Concomitant]
     Active Substance: LORATADINE

REACTIONS (5)
  - Myocardial infarction [Unknown]
  - Coronary artery disease [Unknown]
  - Angina unstable [Unknown]
  - Fluid retention [Unknown]
  - Oedema peripheral [Unknown]
